FAERS Safety Report 5086647-0 (Version None)
Quarter: 2006Q3

REPORT INFORMATION
  Report Type: 
  Country: None (occurrence: None)
  Receive Date: 20060823
  Receipt Date: 20050311
  Transmission Date: 20061208
  Serious: No
  Sender: FDA-Public Use
  Company Number: US-GLAXOSMITHKLINE-A0549720A

PATIENT
  Age: 57 Year
  Sex: Female

DRUGS (5)
  1. MALARONE [Suspect]
     Indication: MALARIA PROPHYLAXIS
     Route: 048
     Dates: start: 20050201, end: 20050201
  2. SYNTHROID [Concomitant]
  3. LIPITOR [Concomitant]
  4. MULTI-VITAMIN [Concomitant]
  5. GLUCOSAMINE [Concomitant]

REACTIONS (2)
  - DIARRHOEA [None]
  - HEADACHE [None]
